FAERS Safety Report 21384513 (Version 7)
Quarter: 2023Q1

REPORT INFORMATION
  Report Type: Report from Study
  Country: US (occurrence: US)
  Receive Date: 20220928
  Receipt Date: 20230210
  Transmission Date: 20230418
  Serious: Yes (Hospitalization)
  Sender: FDA-Public Use
  Company Number: US-002147023-NVSC2022US219096

PATIENT
  Sex: Female

DRUGS (2)
  1. TABRECTA [Suspect]
     Active Substance: CAPMATINIB
     Indication: Product used for unknown indication
     Dosage: 200 MG, BID
     Route: 048
     Dates: start: 20220922
  2. TABRECTA [Suspect]
     Active Substance: CAPMATINIB
     Dosage: UNK
     Route: 048
     Dates: start: 20220923

REACTIONS (15)
  - Adenovirus infection [Unknown]
  - Diarrhoea [Unknown]
  - Hypotension [Unknown]
  - Cough [Unknown]
  - Dehydration [Unknown]
  - Feeling abnormal [Unknown]
  - Muscle spasms [Unknown]
  - Insomnia [Recovering/Resolving]
  - Flatulence [Unknown]
  - Peripheral swelling [Unknown]
  - Nausea [Recovering/Resolving]
  - Fatigue [Unknown]
  - Pleural effusion [Unknown]
  - Asthenia [Unknown]
  - Hypersensitivity [Unknown]
